FAERS Safety Report 6169580-2 (Version None)
Quarter: 2009Q2

REPORT INFORMATION
  Report Type: 
  Country: None (occurrence: None)
  Receive Date: 20090428
  Receipt Date: 20090420
  Transmission Date: 20091009
  Serious: Yes (Other)
  Sender: FDA-Public Use
  Company Number: US-ASTRAZENECA-2009UW09742

PATIENT

DRUGS (1)
  1. PRILOSEC [Suspect]
     Route: 048

REACTIONS (5)
  - ALOPECIA [None]
  - DRUG INEFFECTIVE [None]
  - GRAND MAL CONVULSION [None]
  - OSTEOPOROSIS [None]
  - SPINAL COMPRESSION FRACTURE [None]
